FAERS Safety Report 7536717-X (Version None)
Quarter: 2011Q2

REPORT INFORMATION
  Report Type: 
  Country: None (occurrence: None)
  Receive Date: 20110609
  Receipt Date: 20110602
  Transmission Date: 20111010
  Serious: Yes (Hospitalization)
  Sender: FDA-Public Use
  Company Number: B0718156A

PATIENT

DRUGS (11)
  1. GLICLAZIDE [Concomitant]
     Route: 065
  2. VOTRIENT [Suspect]
     Indication: METASTATIC RENAL CELL CARCINOMA
     Dosage: 400MG PER DAY
     Route: 048
     Dates: start: 20110311
  3. ROSUVASTATIN [Concomitant]
     Route: 065
  4. VENTOLIN HFA [Concomitant]
     Route: 065
  5. TRAMADOL HCL [Concomitant]
     Route: 065
  6. WARFARIN SODIUM [Concomitant]
     Route: 065
  7. PANTOPRAZOLE [Concomitant]
     Route: 065
  8. PREDNISOLONE [Concomitant]
     Route: 065
  9. CYCLIZINE [Concomitant]
     Route: 065
  10. LERCANIDIPINE [Concomitant]
     Route: 065
  11. MOTILIUM [Concomitant]
     Route: 065

REACTIONS (1)
  - BLOOD POTASSIUM INCREASED [None]
